FAERS Safety Report 13103217 (Version 2)
Quarter: 2017Q1

REPORT INFORMATION
  Report Type: Spontaneous
  Country: CA (occurrence: CA)
  Receive Date: 20170110
  Receipt Date: 20170213
  Transmission Date: 20170428
  Serious: Yes (Hospitalization, Other)
  Sender: FDA-Public Use
  Company Number: CA-AMGEN-CANSP2017001771

PATIENT
  Age: 64 Year
  Sex: Male
  Weight: 89 kg

DRUGS (3)
  1. DOCETAXEL. [Suspect]
     Active Substance: DOCETAXEL
     Indication: SOFT TISSUE SARCOMA
     Dosage: 216 MG, Q3WK (DAY 1)
     Route: 065
     Dates: start: 20161213
  2. NEUPOGEN [Suspect]
     Active Substance: FILGRASTIM
     Indication: PROPHYLAXIS
     Dosage: 480 MUG, QD (1 DAY POST CHEMO X 7 DAYS)
     Route: 058
     Dates: start: 20161214
  3. GEMCITABINE [Suspect]
     Active Substance: GEMCITABINE\GEMCITABINE HYDROCHLORIDE
     Indication: SOFT TISSUE SARCOMA
     Dosage: 1944 MG, Q3WK (DAY 1, 8)
     Route: 065
     Dates: start: 20161206

REACTIONS (1)
  - Febrile neutropenia [Recovered/Resolved]

NARRATIVE: CASE EVENT DATE: 20161218
